FAERS Safety Report 8270849-6 (Version None)
Quarter: 2012Q2

REPORT INFORMATION
  Report Type: 
  Country: None (occurrence: None)
  Receive Date: 20120410
  Receipt Date: 20120410
  Transmission Date: 20120825
  Serious: No
  Sender: FDA-Public Use
  Company Number: None

PATIENT
  Age: 525 Year
  Sex: Female
  Weight: 38.101 kg

DRUGS (2)
  1. PLAVIX [Suspect]
     Indication: CHEST PAIN
     Dosage: 1 TAB
     Route: 048
  2. LIPITOR [Concomitant]
     Indication: BLOOD CHOLESTEROL INCREASED
     Dosage: 1 TAB
     Route: 048

REACTIONS (1)
  - VISION BLURRED [None]
